FAERS Safety Report 9365789 (Version 1)
Quarter: 2013Q2

REPORT INFORMATION
  Report Type: Spontaneous
  Country: US (occurrence: None)
  Receive Date: 20130624
  Receipt Date: 20130624
  Transmission Date: 20140414
  Serious: Yes (Hospitalization)
  Sender: FDA-Public Use
  Company Number: None

PATIENT
  Age: 41 Year
  Sex: Male

DRUGS (1)
  1. SOMATULINE [Suspect]
     Dosage: EVERY 4 WEEKS
     Dates: start: 20130513

REACTIONS (2)
  - Abdominal pain [None]
  - Cholelithiasis [None]
